FAERS Safety Report 7150859-2 (Version None)
Quarter: 2010Q4

REPORT INFORMATION
  Report Type: 
  Country: None (occurrence: None)
  Receive Date: 20101210
  Receipt Date: 20101206
  Transmission Date: 20110411
  Serious: Yes (Other)
  Sender: FDA-Public Use
  Company Number: GB-ROCHE-744981

PATIENT
  Age: 82 Year
  Sex: Female

DRUGS (1)
  1. BEVACIZUMAB [Suspect]
     Route: 031

REACTIONS (1)
  - PEMPHIGOID [None]
